FAERS Safety Report 6978006-8 (Version None)
Quarter: 2010Q3

REPORT INFORMATION
  Report Type: 
  Country: None (occurrence: None)
  Receive Date: 20100913
  Receipt Date: 20100817
  Transmission Date: 20110219
  Serious: No
  Sender: FDA-Public Use
  Company Number: US-PFIZER INC-2010105340

PATIENT
  Sex: Female
  Weight: 68.027 kg

DRUGS (6)
  1. ZOLOFT [Suspect]
     Indication: DEPRESSION
     Dosage: 50 MG, UNK
  2. PRISTIQ [Suspect]
     Indication: DEPRESSION
     Dosage: 50 MG, UNK
     Route: 048
  3. AMBIEN [Suspect]
     Indication: SLEEP DISORDER
     Dosage: UNK
  4. VICODIN [Concomitant]
     Indication: PAIN
     Dosage: UNK, OCASSIONALY
  5. ADDERALL 10 [Concomitant]
     Dosage: UNK
  6. TRILAFON [Concomitant]
     Dosage: UNK

REACTIONS (5)
  - CENTRAL NERVOUS SYSTEM STIMULATION [None]
  - DIZZINESS [None]
  - FATIGUE [None]
  - HEADACHE [None]
  - SEDATION [None]
